FAERS Safety Report 9911480 (Version 1)
Quarter: 2014Q1

REPORT INFORMATION
  Report Type: Spontaneous
  Country: CN (occurrence: CN)
  Receive Date: 20140219
  Receipt Date: 20140219
  Transmission Date: 20141002
  Serious: Yes (Death, Other)
  Sender: FDA-Public Use
  Company Number: PHHY2014CN018623

PATIENT
  Age: 24 Month
  Sex: Male

DRUGS (7)
  1. OCTREOTIDE [Suspect]
     Indication: IMMUNOSUPPRESSION
     Dosage: UNK
  2. OCTREOTIDE [Suspect]
     Indication: OFF LABEL USE
  3. MYCOPHENOLATE MOFETIL [Suspect]
     Indication: AUTOIMMUNE HAEMOLYTIC ANAEMIA
  4. CICLOSPORIN [Suspect]
     Indication: AUTOIMMUNE HAEMOLYTIC ANAEMIA
  5. METHYLPREDNISOLONE [Suspect]
     Indication: AUTOIMMUNE HAEMOLYTIC ANAEMIA
  6. BASILIXIMAB [Suspect]
     Indication: IMMUNOSUPPRESSION
  7. INFLIXIMAB [Suspect]
     Indication: IMMUNOSUPPRESSION

REACTIONS (14)
  - Sepsis [Fatal]
  - Autoimmune haemolytic anaemia [Unknown]
  - Anaemia [Unknown]
  - Chromaturia [Unknown]
  - Escherichia infection [Unknown]
  - Pyrexia [Unknown]
  - Pneumatosis intestinalis [Unknown]
  - Abdominal pain [Unknown]
  - Graft versus host disease in skin [Unknown]
  - Dermatitis exfoliative [Unknown]
  - Graft versus host disease in intestine [Unknown]
  - Graft versus host disease in liver [Unknown]
  - Drug ineffective for unapproved indication [Unknown]
  - No therapeutic response [Unknown]
